FAERS Safety Report 9257375 (Version 2)
Quarter: 2013Q3

REPORT INFORMATION
  Report Type: Spontaneous
  Country: US (occurrence: US)
  Receive Date: 20130426
  Receipt Date: 20130723
  Transmission Date: 20140515
  Serious: Yes (Other)
  Sender: FDA-Public Use
  Company Number: US-BAYER-2013-052472

PATIENT
  Age: 24 Year
  Sex: Female
  Weight: 62.13 kg

DRUGS (2)
  1. MIRENA [Suspect]
     Indication: CONTRACEPTION
     Dosage: 20 MCG/24HR, CONT
     Route: 015
     Dates: start: 20130125
  2. MIRENA [Suspect]
     Indication: ENDOMETRIOSIS

REACTIONS (5)
  - Genital haemorrhage [None]
  - Pelvic pain [None]
  - Device expulsion [None]
  - Endometriosis [Recovered/Resolved]
  - Abdominal pain [Recovered/Resolved]
